FAERS Safety Report 9980842 (Version 1)
Quarter: 2014Q1

REPORT INFORMATION
  Report Type: Spontaneous
  Country: DE (occurrence: DE)
  Receive Date: 20140307
  Receipt Date: 20140307
  Transmission Date: 20141002
  Serious: Yes (Other)
  Sender: FDA-Public Use
  Company Number: DE-JNJFOC-20140303063

PATIENT
  Age: 77 Year
  Sex: Male
  Weight: 60 kg

DRUGS (1)
  1. XARELTO [Suspect]
     Indication: CEREBROVASCULAR ACCIDENT
     Route: 048

REACTIONS (12)
  - Haematoma [Unknown]
  - Memory impairment [Unknown]
  - General physical health deterioration [Unknown]
  - Weight decreased [Unknown]
  - Depression [Unknown]
  - Dizziness [Unknown]
  - Coordination abnormal [Unknown]
  - Gait disturbance [Unknown]
  - Asthenia [Unknown]
  - Pallor [Unknown]
  - Daydreaming [Unknown]
  - Dry mouth [Unknown]
